FAERS Safety Report 6071164-1 (Version None)
Quarter: 2009Q1

REPORT INFORMATION
  Report Type: 
  Country: None (occurrence: None)
  Receive Date: 20090209
  Receipt Date: 20090203
  Transmission Date: 20090719
  Serious: Yes (Life-Threatening)
  Sender: FDA-Public Use
  Company Number: JP-ASTRAZENECA-2008SE05539

PATIENT
  Sex: Male

DRUGS (7)
  1. BLOPRESS TABLETS 8 [Suspect]
     Indication: HYPERTENSION
     Route: 048
     Dates: end: 20080529
  2. BIOFERMIN [Suspect]
     Route: 048
     Dates: end: 20080529
  3. GASMOTIN [Suspect]
     Route: 048
     Dates: end: 20080529
  4. GLIMICRON [Suspect]
     Route: 048
     Dates: end: 20080529
  5. AMLODIN [Suspect]
     Route: 048
     Dates: end: 20080529
  6. LENDORMIN [Suspect]
     Route: 048
     Dates: end: 20080529
  7. PARIET [Concomitant]
     Route: 048
     Dates: end: 20080529

REACTIONS (1)
  - HEPATITIS ACUTE [None]
